FAERS Safety Report 20906919 (Version 1)
Quarter: 2022Q2

REPORT INFORMATION
  Report Type: Spontaneous
  Country: US (occurrence: US)
  Receive Date: 20220602
  Receipt Date: 20220602
  Transmission Date: 20220720
  Serious: Yes (Other)
  Sender: FDA-Public Use
  Company Number: US-009507513-2205USA008083

PATIENT
  Sex: Female

DRUGS (1)
  1. KEYTRUDA [Suspect]
     Active Substance: PEMBROLIZUMAB
     Indication: Uterine cancer
     Dosage: EVERY 3 WEEKS (Q3W)
     Route: 042

REACTIONS (4)
  - Hysterectomy [Unknown]
  - Depressed level of consciousness [Unknown]
  - Urinary tract infection [Unknown]
  - Discomfort [Unknown]
